FAERS Safety Report 23821287 (Version 2)
Quarter: 2024Q2

REPORT INFORMATION
  Report Type: Spontaneous
  Country: US (occurrence: US)
  Receive Date: 20240506
  Receipt Date: 20240510
  Transmission Date: 20240716
  Serious: No
  Sender: FDA-Public Use
  Company Number: US-PFIZER INC-202400099286

PATIENT
  Sex: Female

DRUGS (3)
  1. ABROCITINIB [Interacting]
     Active Substance: ABROCITINIB
     Indication: Dermatitis atopic
     Dosage: 100 MG
  2. ABROCITINIB [Interacting]
     Active Substance: ABROCITINIB
     Dosage: 150 MG
  3. METFORMIN [Interacting]
     Active Substance: METFORMIN HYDROCHLORIDE
     Indication: Blood glucose increased
     Dosage: UNK

REACTIONS (3)
  - Inhibitory drug interaction [Unknown]
  - Drug ineffective [Recovered/Resolved]
  - Off label use [Unknown]
